FAERS Safety Report 20567129 (Version 1)
Quarter: 2022Q1

REPORT INFORMATION
  Report Type: Spontaneous
  Country: US (occurrence: US)
  Receive Date: 20220308
  Receipt Date: 20220308
  Transmission Date: 20220424
  Serious: No
  Sender: FDA-Public Use
  Company Number: US-PFIZER INC-202100916097

PATIENT
  Age: 48 Year
  Sex: Male
  Weight: 90.703 kg

DRUGS (5)
  1. XELJANZ XR [Suspect]
     Active Substance: TOFACITINIB CITRATE
     Indication: Rheumatoid arthritis
     Dosage: 11 MG, DAILY
     Route: 048
     Dates: start: 202101
  2. BIFIDOBACTERIUM ANIMALIS LACTIS [Concomitant]
     Active Substance: BIFIDOBACTERIUM ANIMALIS LACTIS
     Dosage: 250 MG
  3. GINKGO [Concomitant]
     Active Substance: GINKGO
     Dosage: 120 MG
  4. DERMACINRX CINLONE I CPI [Concomitant]
     Dosage: UNK
  5. FOLIXAPURE [Concomitant]
     Active Substance: FOLIC ACID\VITAMIN D
     Dosage: UNK

REACTIONS (1)
  - Decreased appetite [Unknown]
